FAERS Safety Report 8808156 (Version 1)
Quarter: 2012Q4

REPORT INFORMATION
  Report Type: 
  Country: CA (occurrence: CA)
  Receive Date: 20120925
  Receipt Date: 20120925
  Transmission Date: 20130627
  Serious: Yes (Hospitalization)
  Sender: FDA-Public Use
  Company Number: CA-B.I. PHARMACEUTICALS,INC./RIDGEFIELD-2012-CN-01905CN

PATIENT
  Age: 52 Year
  Sex: Male

DRUGS (3)
  1. MICARDIS [Suspect]
     Dosage: 40 mg
     Route: 048
  2. ACEBUTOLOL HYDROCHLORIDE [Concomitant]
     Route: 065
  3. CLONIDINE [Concomitant]
     Route: 065

REACTIONS (3)
  - Myocardial ischaemia [Not Recovered/Not Resolved]
  - Abdominal pain upper [Not Recovered/Not Resolved]
  - Chest pain [Not Recovered/Not Resolved]
